FAERS Safety Report 7018938-8 (Version None)
Quarter: 2010Q3

REPORT INFORMATION
  Report Type: 
  Country: None (occurrence: None)
  Receive Date: 20100928
  Receipt Date: 20100914
  Transmission Date: 20110219
  Serious: Yes (Hospitalization)
  Sender: FDA-Public Use
  Company Number: US-MYLANLABS-2010S1016796

PATIENT
  Age: 53 Year
  Sex: Female

DRUGS (10)
  1. GABAPENTIN [Suspect]
     Dosage: 300MG IN THE MORNING AND AT NOON
     Route: 048
  2. GABAPENTIN [Suspect]
     Dosage: 100MG AT NIGHT
     Route: 048
  3. SPIRONOLACTONE [Concomitant]
     Dosage: 100MG TWICE DAILY
     Route: 048
  4. NADOLOL [Concomitant]
     Dosage: 40 MG/DAY
     Route: 048
  5. LACTULOSE [Concomitant]
     Dosage: 10G TWICE DAILY
     Route: 048
  6. URSODIOL [Concomitant]
     Dosage: 300 MG/DAY
     Route: 048
  7. FERROUS SULFATE [Concomitant]
     Dosage: 325 MG/DAY
     Route: 048
  8. OMEPRAZOLE [Concomitant]
     Dosage: 20MG TWICE DAILY
     Route: 048
  9. CITALOPRAM HYDROBROMIDE [Concomitant]
     Dosage: 10 MG/DAY
     Route: 048
  10. TRAZODONE [Concomitant]
     Dosage: 50MG AT NIGHT
     Route: 048

REACTIONS (3)
  - CONFUSIONAL STATE [None]
  - DISORIENTATION [None]
  - WITHDRAWAL SYNDROME [None]
